FAERS Safety Report 23646454 (Version 2)
Quarter: 2024Q2

REPORT INFORMATION
  Report Type: Report from Study
  Country: US (occurrence: US)
  Receive Date: 20240319
  Receipt Date: 20240507
  Transmission Date: 20240715
  Serious: Yes (Hospitalization, Other)
  Sender: FDA-Public Use
  Company Number: US-AMNEAL PHARMACEUTICALS-2024-AMRX-00866

PATIENT
  Sex: Female

DRUGS (2)
  1. CARBIDOPA\LEVODOPA [Suspect]
     Active Substance: CARBIDOPA\LEVODOPA
     Indication: Product used for unknown indication
     Dosage: 48.75-195MG (TAKE 2 CAPSULES BY MOUTH 4 TIMES DAILY)
     Route: 048
  2. CARBIDOPA\LEVODOPA [Suspect]
     Active Substance: CARBIDOPA\LEVODOPA
     Dosage: 48.75-195MG (TAKE 2 CAPSULES BY MOUTH 5 TIMES DAILY)
     Route: 048
     Dates: start: 20240501

REACTIONS (10)
  - COVID-19 [Unknown]
  - Fall [Unknown]
  - Parkinson^s disease [Not Recovered/Not Resolved]
  - Stress [Unknown]
  - Pain [Unknown]
  - Tremor [Unknown]
  - Nasopharyngitis [Unknown]
  - Coagulopathy [Unknown]
  - Glucose tolerance impaired [Unknown]
  - Weight increased [Unknown]
